FAERS Safety Report 8358234-X (Version None)
Quarter: 2012Q2

REPORT INFORMATION
  Report Type: 
  Country: None (occurrence: None)
  Receive Date: 20120514
  Receipt Date: 20120502
  Transmission Date: 20120825
  Serious: Yes (Hospitalization)
  Sender: FDA-Public Use
  Company Number: FR-GLAXOSMITHKLINE-B0799433A

PATIENT
  Age: 41 Year
  Sex: Female
  Weight: 69 kg

DRUGS (6)
  1. PREDNISONE TAB [Concomitant]
  2. PHENOXYMETHYL PENICILLIN [Concomitant]
  3. BECILAN [Concomitant]
  4. ARIXTRA [Suspect]
     Indication: VENOUS THROMBOSIS LIMB
     Dosage: 7.5MG PER DAY
     Route: 058
     Dates: start: 20120201
  5. DANAZOL [Concomitant]
  6. FOLIC ACID [Concomitant]

REACTIONS (3)
  - DRUG INEFFECTIVE [None]
  - CEREBRAL VENOUS THROMBOSIS [None]
  - STATUS EPILEPTICUS [None]
